FAERS Safety Report 5120637-4 (Version None)
Quarter: 2006Q4

REPORT INFORMATION
  Report Type: 
  Country: None (occurrence: None)
  Receive Date: 20061002
  Receipt Date: 20060918
  Transmission Date: 20070319
  Serious: Yes (Other)
  Sender: FDA-Public Use
  Company Number: CA200609004844

PATIENT
  Age: 34 Year
  Sex: Female

DRUGS (1)
  1. HUMATROPE [Suspect]
     Dosage: 0.6 MG, DAILY (1/D), SUBCUTANEOUS
     Route: 058

REACTIONS (4)
  - DIZZINESS [None]
  - HOT FLUSH [None]
  - INSOMNIA [None]
  - PITUITARY TUMOUR BENIGN [None]
